FAERS Safety Report 7811380-9 (Version None)
Quarter: 2011Q4

REPORT INFORMATION
  Report Type: 
  Country: None (occurrence: None)
  Receive Date: 20111013
  Receipt Date: 20111005
  Transmission Date: 20120403
  Serious: Yes (Hospitalization)
  Sender: FDA-Public Use
  Company Number: FR-PFIZER INC-2011242443

PATIENT
  Age: 50 Year
  Sex: Male

DRUGS (6)
  1. HYPERIUM [Suspect]
     Dosage: UNKNOWN DOSE
     Dates: start: 20091001
  2. PANTOPRAZOLE [Suspect]
     Dosage: UNKNOWN DOSE
     Dates: end: 20110919
  3. MYCOPHENOLATE MOFETIL (CELLCEPT) [Suspect]
     Dosage: UNKNOWN DOSE
     Dates: start: 20110401, end: 20110912
  4. PREDNISOLONE [Concomitant]
     Dosage: UNK
  5. TACROLIMUS [Suspect]
     Dosage: 6.6
     Route: 048
     Dates: start: 20110401
  6. AMLODIPINE [Suspect]
     Dosage: UNKNOWN DOSE
     Dates: end: 20110920

REACTIONS (1)
  - NEUTROPENIA [None]
